FAERS Safety Report 9176910 (Version 1)
Quarter: 2013Q1

REPORT INFORMATION
  Report Type: Spontaneous
  Country: US (occurrence: US)
  Receive Date: 20130321
  Receipt Date: 20130321
  Transmission Date: 20140127
  Serious: No
  Sender: FDA-Public Use
  Company Number: US-PFIZER INC-2013088196

PATIENT
  Age: 10 Year
  Sex: Female
  Weight: 38.55 kg

DRUGS (2)
  1. CHILDRENS ADVIL [Suspect]
     Indication: PYREXIA
     Dosage: UNK
     Route: 048
     Dates: start: 20130312, end: 20130313
  2. SERTRALINE [Concomitant]
     Dosage: UNK

REACTIONS (1)
  - Mydriasis [Not Recovered/Not Resolved]
